FAERS Safety Report 5601558-7 (Version None)
Quarter: 2008Q1

REPORT INFORMATION
  Report Type: 
  Country: None (occurrence: None)
  Receive Date: 20080124
  Receipt Date: 20080115
  Transmission Date: 20080703
  Serious: Yes (Hospitalization)
  Sender: FDA-Public Use
  Company Number: GB-ROCHE-511240

PATIENT
  Age: 75 Year
  Sex: Male
  Weight: 75 kg

DRUGS (7)
  1. CAPECITABINE [Suspect]
     Dosage: DOSE CAPTURED IS THE DOSE GIVEN AT MOST RECENT ADMINISTRATION, THE DOSE PER PROTOCOL IS: 1250MG/M2/+
     Route: 048
     Dates: start: 20070704
  2. CISPLATIN [Suspect]
     Dosage: DOSE CAPTURED IS THE DOSE GIVEN AT MOST RECENT ADMINISTRATION, THE DOSE PER PROTOCOL IS: 60MG/M2 GI+
     Route: 042
     Dates: start: 20070704
  3. EPIRUBICIN [Suspect]
     Dosage: DOSE CAPTURED IS THE DOSE GIVEN AT MOST RECENT ADMINISTRATION, THE DOSE PER PROTOCOL IS: 50MG/M2 GI+
     Route: 042
     Dates: start: 20070704
  4. TAZOCIN [Suspect]
     Indication: DRUG USE FOR UNKNOWN INDICATION
     Route: 042
     Dates: start: 20070805, end: 20070810
  5. MOVICOL [Concomitant]
     Route: 048
     Dates: start: 20070701, end: 20070805
  6. NITRENDIPINE [Concomitant]
     Dosage: REPORTED AS NITEDIPINE
     Route: 048
     Dates: start: 20010101, end: 20070805
  7. PARACETAMOL [Concomitant]
     Route: 048
     Dates: start: 20070805, end: 20070809

REACTIONS (2)
  - DIARRHOEA [None]
  - FEBRILE NEUTROPENIA [None]
